FAERS Safety Report 9151780 (Version 1)
Quarter: 2013Q1

REPORT INFORMATION
  Report Type: Spontaneous
  Country: US (occurrence: US)
  Receive Date: 20130308
  Receipt Date: 20130308
  Transmission Date: 20140127
  Serious: Yes (Other)
  Sender: FDA-Public Use
  Company Number: US-JNJFOC-20130301509

PATIENT
  Age: 26 Year
  Sex: Male
  Weight: 55.79 kg

DRUGS (2)
  1. BENADRYL [Suspect]
     Indication: MULTIPLE ALLERGIES
     Route: 048
     Dates: start: 20130128, end: 20130214
  2. BENADRYL ALLERGY [Suspect]
     Indication: HYPERSENSITIVITY
     Route: 048
     Dates: start: 20130128, end: 20130204

REACTIONS (5)
  - Throat tightness [Recovered/Resolved]
  - Skin haemorrhage [Recovered/Resolved]
  - Dysphagia [Recovered/Resolved]
  - Expressive language disorder [Recovered/Resolved]
  - Adverse drug reaction [Recovered/Resolved]
